FAERS Safety Report 6406827-9 (Version None)
Quarter: 2009Q4

REPORT INFORMATION
  Report Type: 
  Country: None (occurrence: None)
  Receive Date: 20091020
  Receipt Date: 20091013
  Transmission Date: 20100525
  Serious: Yes (Other)
  Sender: FDA-Public Use
  Company Number: IL-WYE-H11591609

PATIENT
  Age: 50 Year
  Sex: Male

DRUGS (3)
  1. TYGACIL [Suspect]
     Indication: ABSCESS
     Dosage: UNKNOWN
     Route: 042
     Dates: start: 20090101, end: 20090925
  2. TYGACIL [Suspect]
     Indication: MYCOBACTERIAL INFECTION
  3. ZOLEDRONIC ACID [Suspect]
     Indication: NAUSEA
     Dosage: UNKNOWN
     Dates: start: 20090101

REACTIONS (3)
  - DECREASED APPETITE [None]
  - DEPRESSION SUICIDAL [None]
  - NAUSEA [None]
